FAERS Safety Report 5675418-X (Version None)
Quarter: 2008Q1

REPORT INFORMATION
  Report Type: 
  Country: None (occurrence: None)
  Receive Date: 20080320
  Receipt Date: 20080310
  Transmission Date: 20080703
  Serious: Yes (Hospitalization, Other)
  Sender: FDA-Public Use
  Company Number: US-AMGEN-QUU260698

PATIENT
  Sex: Female

DRUGS (2)
  1. ENBREL [Suspect]
     Indication: PSORIASIS
     Route: 058
     Dates: start: 20060416, end: 20070501
  2. ENBREL [Suspect]
     Indication: PSORIATIC ARTHROPATHY

REACTIONS (6)
  - HEPATIC FAILURE [None]
  - HERPES ZOSTER [None]
  - INJECTION SITE PAIN [None]
  - LUPUS-LIKE SYNDROME [None]
  - PSORIASIS [None]
  - PYREXIA [None]
